FAERS Safety Report 4313015-9 (Version None)
Quarter: 2004Q1

REPORT INFORMATION
  Report Type: 
  Country: None (occurrence: None)
  Receive Date: 20040308
  Receipt Date: 20040225
  Transmission Date: 20041129
  Serious: Yes (Hospitalization)
  Sender: FDA-Public Use
  Company Number: US-BRISTOL-MYERS SQUIBB COMPANY-12525796

PATIENT
  Age: 39 Year
  Sex: Male

DRUGS (5)
  1. SERZONE [Suspect]
  2. AMBIEN [Concomitant]
  3. PRILOSEC [Concomitant]
  4. ACIPHEX [Concomitant]
  5. NEXIUM [Concomitant]

REACTIONS (2)
  - ABDOMINAL PAIN UPPER [None]
  - PANCREATITIS CHRONIC [None]
